FAERS Safety Report 7639943-4 (Version None)
Quarter: 2011Q3

REPORT INFORMATION
  Report Type: 
  Country: None (occurrence: None)
  Receive Date: 20110727
  Receipt Date: 20110721
  Transmission Date: 20111222
  Serious: Yes (Hospitalization)
  Sender: FDA-Public Use
  Company Number: GB-AMGEN-GBRCT2011037310

PATIENT
  Age: 36 Year
  Sex: Male

DRUGS (13)
  1. DEXAMETHASONE [Concomitant]
     Dosage: 8 MG, UNK
     Route: 042
  2. HYDROCORTISONE [Concomitant]
  3. ACETAMINOPHEN AND CODEINE PHOSPHATE [Concomitant]
  4. LOPERAMIDE [Concomitant]
     Dosage: 2 MG, UNK
     Route: 048
  5. PANITUMUMAB [Suspect]
     Indication: GASTRIC CANCER
     Dosage: UNK
     Dates: start: 20110714
  6. OXALIPLATIN [Concomitant]
     Dosage: UNK
     Dates: start: 20110714
  7. CAPECITABINE [Concomitant]
     Dosage: UNK
     Dates: start: 20110714, end: 20110719
  8. ONDANSETRON [Concomitant]
     Dosage: 4 MG, UNK
  9. METOCLOPRAMIDE [Concomitant]
     Dosage: 10 MG, UNK
  10. DIPROBASE [Concomitant]
  11. EPIRUBICIN [Concomitant]
     Dosage: UNK
     Dates: start: 20110714
  12. LYMECYCLINE [Concomitant]
     Dosage: 408 MG, QD
     Route: 048
  13. OMEPRAZOLE [Concomitant]
     Dosage: UNK

REACTIONS (5)
  - DIARRHOEA [None]
  - FATIGUE [None]
  - ABDOMINAL PAIN [None]
  - NAUSEA [None]
  - DECREASED APPETITE [None]
